FAERS Safety Report 8420930 (Version 3)
Quarter: 2014Q2

REPORT INFORMATION
  Report Type: Report from Study
  Country: BR (occurrence: BR)
  Receive Date: 20120222
  Receipt Date: 20140423
  Transmission Date: 20141212
  Serious: Yes (Hospitalization, Other)
  Sender: FDA-Public Use
  Company Number: BR-ROCHE-1039458

PATIENT
  Age: 75 Year
  Sex: Female
  Weight: 68 kg

DRUGS (14)
  1. MABTHERA [Suspect]
     Indication: RHEUMATOID ARTHRITIS
     Route: 042
     Dates: start: 20110919, end: 20111004
  2. MABTHERA [Suspect]
     Route: 042
     Dates: start: 20120330, end: 20120413
  3. MABTHERA [Suspect]
     Route: 042
     Dates: start: 20121221
  4. BONALON [Concomitant]
     Route: 065
  5. CORTICORTEN [Concomitant]
  6. FOLIC ACID [Concomitant]
  7. PREDNISONE [Concomitant]
     Route: 065
  8. METHOTREXATE [Concomitant]
  9. IBUPROFEN [Concomitant]
     Route: 065
  10. RIVOTRIL [Concomitant]
     Route: 065
  11. OSTEONUTRI [Concomitant]
  12. GLUCOREUMIN [Concomitant]
  13. CITALOR [Concomitant]
  14. FLUOXETINE [Concomitant]

REACTIONS (6)
  - Ligament rupture [Unknown]
  - Fall [Recovered/Resolved]
  - Weight increased [Not Recovered/Not Resolved]
  - Mobility decreased [Not Recovered/Not Resolved]
  - Arthralgia [Not Recovered/Not Resolved]
  - Lower limb fracture [Unknown]
